FAERS Safety Report 4609049-7 (Version None)
Quarter: 2005Q2

REPORT INFORMATION
  Report Type: 
  Country: None (occurrence: None)
  Receive Date: 20050228
  Receipt Date: 20040203
  Transmission Date: 20051028
  Serious: Yes (Hospitalization, Other)
  Sender: FDA-Public Use
  Company Number: 1524

PATIENT
  Age: 78 Year
  Sex: Female

DRUGS (10)
  1. TARGRETIN [Suspect]
     Indication: LYMPHOMATOID PAPULOSIS
     Dosage: 225 MG QD; PO
     Route: 048
     Dates: start: 20020301, end: 20040118
  2. ATORVASTATIN CALCIUM [Concomitant]
  3. DIGOXIN [Concomitant]
  4. FUROSEMIDE [Concomitant]
  5. GEMFIBROZIL [Concomitant]
  6. INSULIN [Concomitant]
  7. METOPROLOL SUCINNATE [Concomitant]
  8. POTASSIUM CHLORIDE [Concomitant]
  9. WARFARIN SODIUM [Concomitant]
  10. ROSIGLITAZONE MALEATE [Concomitant]

REACTIONS (2)
  - HAEMOLYTIC ANAEMIA [None]
  - THROMBOCYTOPENIA [None]
